FAERS Safety Report 10217003 (Version 1)
Quarter: 2014Q2

REPORT INFORMATION
  Report Type: Spontaneous
  Country: DE (occurrence: DE)
  Receive Date: 20140604
  Receipt Date: 20140604
  Transmission Date: 20141212
  Serious: Yes (Hospitalization)
  Sender: FDA-Public Use
  Company Number: DE-ASTRAZENECA-2014SE36725

PATIENT
  Sex: 0

DRUGS (1)
  1. BRILIQUE [Suspect]
     Route: 048

REACTIONS (1)
  - Haemoglobin decreased [Unknown]
